FAERS Safety Report 10105776 (Version 2)
Quarter: 2014Q3

REPORT INFORMATION
  Report Type: Other
  Country: US (occurrence: US)
  Receive Date: 20140424
  Receipt Date: 20140722
  Transmission Date: 20150326
  Serious: Yes (Hospitalization, Other)
  Sender: FDA-Public Use
  Company Number: US-GSKPPD-2014GSK001104

PATIENT
  Age: 53 Year
  Sex: Male
  Weight: 109 kg

DRUGS (3)
  1. AVANDIA [Suspect]
     Active Substance: ROSIGLITAZONE MALEATE
     Indication: DIABETES MELLITUS
     Route: 048
     Dates: start: 200001, end: 2002
  2. AVANDAMET [Suspect]
     Active Substance: METFORMIN HYDROCHLORIDE\ROSIGLITAZONE MALEATE
     Indication: DIABETES MELLITUS
     Dosage: 8/1000MG
     Route: 048
     Dates: start: 2002, end: 200412
  3. AVANDIA [Suspect]
     Active Substance: ROSIGLITAZONE MALEATE
     Route: 048
     Dates: start: 200602, end: 200801

REACTIONS (2)
  - Myocardial infarction [Unknown]
  - Coronary artery bypass [Unknown]

NARRATIVE: CASE EVENT DATE: 20081205
